FAERS Safety Report 6261195-0 (Version None)
Quarter: 2009Q3

REPORT INFORMATION
  Report Type: 
  Country: None (occurrence: None)
  Receive Date: 20090709
  Receipt Date: 20080703
  Transmission Date: 20100115
  Serious: No
  Sender: FDA-Public Use
  Company Number: US-KINGPHARMUSA00001-K200800788

PATIENT
  Age: 45 Year
  Sex: Female

DRUGS (3)
  1. LEVOXYL [Suspect]
     Indication: BASEDOW'S DISEASE
     Dosage: 137 MCG, DAYS 1 + 2
     Route: 048
     Dates: start: 20040101
  2. LEVOXYL [Suspect]
     Dosage: 125 MCG, DAY 3
     Route: 048
     Dates: start: 20040101
  3. BIRTH CONTROL PILLS [Concomitant]
     Dosage: UNK, UNK

REACTIONS (5)
  - ALOPECIA [None]
  - FATIGUE [None]
  - MALAISE [None]
  - MENORRHAGIA [None]
  - THYROID FUNCTION TEST ABNORMAL [None]
